FAERS Safety Report 11046982 (Version 1)
Quarter: 2015Q2

REPORT INFORMATION
  Report Type: Spontaneous
  Country: US (occurrence: US)
  Receive Date: 20150420
  Receipt Date: 20150420
  Transmission Date: 20150821
  Serious: No
  Sender: FDA-Public Use
  Company Number: US-ELI_LILLY_AND_COMPANY-US201504004811

PATIENT
  Sex: Male

DRUGS (3)
  1. HUMULIN N [Suspect]
     Active Substance: INSULIN HUMAN
     Indication: TYPE 1 DIABETES MELLITUS
     Dosage: 26 U, EACH MORNING
     Route: 065
     Dates: start: 1985
  2. INSULIN HUMAN [Suspect]
     Active Substance: INSULIN HUMAN
     Indication: TYPE 1 DIABETES MELLITUS
     Dosage: 5 U, EACH EVENING
     Route: 065
     Dates: start: 1985
  3. HUMULIN N [Suspect]
     Active Substance: INSULIN HUMAN
     Dosage: 17 U, EACH EVENING
     Route: 065
     Dates: start: 1985

REACTIONS (2)
  - Glycosylated haemoglobin increased [Unknown]
  - Medication error [Unknown]
